FAERS Safety Report 9392072 (Version 1)
Quarter: 2013Q3

REPORT INFORMATION
  Report Type: Spontaneous
  Country: AU (occurrence: AU)
  Receive Date: 20130709
  Receipt Date: 20130709
  Transmission Date: 20140515
  Serious: Yes (Death, Hospitalization)
  Sender: FDA-Public Use
  Company Number: PHHY2013AU070635

PATIENT
  Age: 9 Year
  Sex: Female

DRUGS (14)
  1. MYFORTIC [Suspect]
     Indication: RENAL TRANSPLANT
     Dosage: 360 MG, BID
  2. BASILIXIMAB [Suspect]
     Indication: RENAL TRANSPLANT
     Dosage: 10 MG, ON DAY ZERO
  3. BASILIXIMAB [Suspect]
     Dosage: 10 UNK, ON DAY 4
  4. BASILIXIMAB [Suspect]
     Dosage: 12 MG/M2, PER DOSE
  5. TACROLIMUS [Concomitant]
     Dosage: 3.5 MG, BID
  6. TACROLIMUS [Concomitant]
     Dosage: 3 UG/L
  7. TACROLIMUS [Concomitant]
     Dosage: 0.1 MG, UNK
     Route: 042
  8. METHYLPREDISOLONE [Concomitant]
     Dosage: 300 MG,TWO UNK(15MG/KG)
  9. PREDNISOLONE [Concomitant]
     Dosage: 25 MG, QD
     Route: 048
  10. PREDNISOLONE [Concomitant]
     Dosage: 8 MG, BY SIX MONTHS AFTER RENAL TRANSPLANT
  11. COTRIMOXAZOLE [Concomitant]
     Dosage: UNK UKN, UNK
  12. RANITIDINE [Concomitant]
     Dosage: UNK UKN, UNK
  13. NYSTATIN [Concomitant]
     Dosage: UNK UKN, UNK
  14. VALGANCICLOVIR [Concomitant]
     Indication: CYTOMEGALOVIRUS INFECTION
     Dosage: UNK UKN, UNK

REACTIONS (20)
  - Gastrointestinal viral infection [Fatal]
  - JC virus infection [Fatal]
  - Abdominal discomfort [Fatal]
  - Diarrhoea [Fatal]
  - Gastritis [Fatal]
  - Erosive duodenitis [Fatal]
  - Colitis erosive [Fatal]
  - Small intestinal obstruction [Fatal]
  - Colitis [Fatal]
  - Ileus [Fatal]
  - Pyrexia [Fatal]
  - Progressive multifocal leukoencephalopathy [Fatal]
  - Encephalitis viral [Fatal]
  - Consciousness fluctuating [Fatal]
  - Photophobia [Fatal]
  - Coma [Fatal]
  - Headache [Fatal]
  - Polyomavirus-associated nephropathy [Unknown]
  - Renal impairment [Unknown]
  - Oliguria [Unknown]
